FAERS Safety Report 11522865 (Version 2)
Quarter: 2015Q4

REPORT INFORMATION
  Report Type: Report from Study
  Country: JP (occurrence: JP)
  Receive Date: 20150918
  Receipt Date: 20151229
  Transmission Date: 20160304
  Serious: Yes (Other)
  Sender: FDA-Public Use
  Company Number: JP-GLAXOSMITHKLINE-JP2015JPN132532

PATIENT
  Age: 39 Year
  Sex: Male
  Weight: 57 kg

DRUGS (11)
  1. TOPINA [Concomitant]
     Active Substance: TOPIRAMATE
     Dosage: 250 MG, 1D
  2. LAMOTRIGINE. [Suspect]
     Active Substance: LAMOTRIGINE
     Indication: SEIZURE
     Dosage: 5 MG, QD
     Route: 048
     Dates: start: 20101119, end: 20110217
  3. LAMOTRIGINE. [Suspect]
     Active Substance: LAMOTRIGINE
     Indication: CLONIC CONVULSION
     Dosage: 10 MG, QD
     Route: 048
     Dates: start: 20110218
  4. PHENOBAL [Concomitant]
     Active Substance: PHENOBARBITAL
     Dosage: 30 MG, 1D
  5. URSO [Concomitant]
     Active Substance: URSODIOL
     Dosage: UNK
  6. ALEVIATIN [Concomitant]
     Active Substance: PHENYTOIN SODIUM
     Dosage: 100 MG, 1D
  7. LAMOTRIGINE. [Suspect]
     Active Substance: LAMOTRIGINE
     Indication: GENERALISED TONIC-CLONIC SEIZURE
  8. NEULEPTIL [Concomitant]
     Active Substance: PERICIAZINE
     Dosage: UNK
  9. MAGMITT [Concomitant]
     Active Substance: MAGNESIUM OXIDE
     Dosage: UNK
  10. DEPAKENE [Concomitant]
     Active Substance: VALPROIC ACID
     Dosage: 1800 MG, 1D
  11. HYDANTOL [Concomitant]
     Active Substance: PHENYTOIN SODIUM
     Dosage: 75 MG, 1D

REACTIONS (1)
  - Pancreatitis [Recovered/Resolved]

NARRATIVE: CASE EVENT DATE: 20110114
